FAERS Safety Report 7043383-9 (Version None)
Quarter: 2010Q3

REPORT INFORMATION
  Report Type: 
  Country: None (occurrence: None)
  Receive Date: 20100929
  Receipt Date: 20100728
  Transmission Date: 20110219
  Serious: No
  Sender: FDA-Public Use
  Company Number: US-WYE-H16688310

PATIENT
  Age: 48 Year
  Sex: Female

DRUGS (1)
  1. PRISTIQ [Suspect]
     Indication: BIPOLAR I DISORDER
     Dosage: 50 MG 1X PER 1 DAY
     Dates: start: 20100301

REACTIONS (3)
  - AMNESIA [None]
  - MOOD ALTERED [None]
  - WEIGHT INCREASED [None]
